FAERS Safety Report 5995297-0 (Version None)
Quarter: 2008Q4

REPORT INFORMATION
  Report Type: 
  Country: None (occurrence: None)
  Receive Date: 20081212
  Receipt Date: 20081203
  Transmission Date: 20090506
  Serious: Yes (Disabling)
  Sender: FDA-Public Use
  Company Number: US-ABBOTT-08P-163-0491020-00

PATIENT
  Sex: Male
  Weight: 120.31 kg

DRUGS (3)
  1. HUMIRA [Suspect]
     Indication: PSORIASIS
     Route: 058
     Dates: start: 20070401
  2. HUMIRA [Suspect]
     Indication: PSORIATIC ARTHROPATHY
  3. QUINAPRIL HCL [Concomitant]
     Indication: HYPERTENSION
     Route: 048

REACTIONS (7)
  - BLOOD PRESSURE INCREASED [None]
  - HEAD INJURY [None]
  - HEADACHE [None]
  - PHOTOPHOBIA [None]
  - SOMNOLENCE [None]
  - VERTIGO [None]
  - WEIGHT INCREASED [None]
